FAERS Safety Report 23269520 (Version 2)
Quarter: 2025Q1

REPORT INFORMATION
  Report Type: Report from Study
  Country: US (occurrence: US)
  Receive Date: 20231207
  Receipt Date: 20250313
  Transmission Date: 20250409
  Serious: Yes (Other)
  Sender: UCB
  Company Number: US-UCBSA-2023057271

PATIENT
  Sex: Female
  Weight: 21.8 kg

DRUGS (1)
  1. FINTEPLA [Suspect]
     Active Substance: FENFLURAMINE
     Indication: Lennox-Gastaut syndrome
     Dosage: 4 MILLIGRAM, 2X/DAY (BID)
     Dates: start: 202106

REACTIONS (1)
  - Seizure [Not Recovered/Not Resolved]
